FAERS Safety Report 23966417 (Version 2)
Quarter: 2024Q2

REPORT INFORMATION
  Report Type: Spontaneous
  Country: FR (occurrence: FR)
  Receive Date: 20240612
  Receipt Date: 20240628
  Transmission Date: 20240716
  Serious: Yes (Hospitalization, Other)
  Sender: FDA-Public Use
  Company Number: None

PATIENT
  Age: 69 Year
  Sex: Female

DRUGS (7)
  1. CEFTOBIPROLE MEDOCARIL SODIUM [Suspect]
     Active Substance: CEFTOBIPROLE MEDOCARIL SODIUM
     Indication: Infection
     Dosage: UNK UNK, UNK
     Route: 042
     Dates: start: 20240223, end: 20240325
  2. CEFTOBIPROLE MEDOCARIL SODIUM [Suspect]
     Active Substance: CEFTOBIPROLE MEDOCARIL SODIUM
     Dosage: UNK UNK, UNK
     Route: 042
     Dates: start: 20240421, end: 20240422
  3. CEFTOBIPROLE MEDOCARIL SODIUM [Suspect]
     Active Substance: CEFTOBIPROLE MEDOCARIL SODIUM
     Dosage: UNK UNK, UNK
     Route: 042
     Dates: start: 20240427, end: 20240513
  4. ORNIDAZOLE [Concomitant]
     Active Substance: ORNIDAZOLE
     Indication: Infection
     Dosage: UNK
     Dates: start: 20240421, end: 20240422
  5. ORNIDAZOLE [Concomitant]
     Active Substance: ORNIDAZOLE
     Dosage: UNK
     Dates: start: 20240427, end: 20240428
  6. ORNIDAZOLE [Concomitant]
     Active Substance: ORNIDAZOLE
     Dosage: UNK
     Dates: start: 20240502, end: 20240513
  7. VANCOMYCIN HYDROCHLORIDE [Concomitant]
     Active Substance: VANCOMYCIN HYDROCHLORIDE
     Indication: Infection
     Dates: start: 20240422, end: 20240426

REACTIONS (2)
  - Stevens-Johnson syndrome [Not Recovered/Not Resolved]
  - Off label use [Unknown]

NARRATIVE: CASE EVENT DATE: 20240516
